FAERS Safety Report 24137963 (Version 1)
Quarter: 2024Q3

REPORT INFORMATION
  Report Type: Spontaneous
  Country: KR (occurrence: KR)
  Receive Date: 20240725
  Receipt Date: 20240725
  Transmission Date: 20241016
  Serious: Yes (Death)
  Sender: GUERBET
  Company Number: None

PATIENT
  Age: 40 Year
  Sex: Female
  Weight: 110 kg

DRUGS (1)
  1. OPTIRAY [Suspect]
     Active Substance: IOVERSOL
     Indication: Computerised tomogram abdomen
     Dates: start: 20200525, end: 20200525

REACTIONS (1)
  - Anaphylactic shock [Fatal]

NARRATIVE: CASE EVENT DATE: 20200525
